FAERS Safety Report 9785311 (Version 4)
Quarter: 2014Q1

REPORT INFORMATION
  Report Type: Report from Study
  Country: CA (occurrence: CA)
  Receive Date: 20131227
  Receipt Date: 20140219
  Transmission Date: 20141002
  Serious: Yes (Other)
  Sender: FDA-Public Use
  Company Number: CA-JNJFOC-20131210669

PATIENT
  Age: 39 Year
  Sex: Male
  Weight: 77.3 kg

DRUGS (5)
  1. REMICADE [Suspect]
     Indication: CROHN^S DISEASE
     Route: 042
  2. REMICADE [Suspect]
     Indication: CROHN^S DISEASE
     Route: 042
     Dates: start: 20130129
  3. PREDNISONE [Concomitant]
     Route: 048
  4. ASACOL [Concomitant]
     Route: 065
  5. HYDROMORPH [Concomitant]
     Route: 065

REACTIONS (3)
  - Fistula [Not Recovered/Not Resolved]
  - Fistula [Recovered/Resolved]
  - Infection [Unknown]
